FAERS Safety Report 5879189-3 (Version None)
Quarter: 2008Q3

REPORT INFORMATION
  Report Type: 
  Country: None (occurrence: None)
  Receive Date: 20080818
  Receipt Date: 20080122
  Transmission Date: 20090109
  Serious: No
  Sender: FDA-Public Use
  Company Number: 20084582

PATIENT
  Sex: Female

DRUGS (1)
  1. LIORESAL [Suspect]
     Indication: MUSCLE SPASTICITY
     Dosage: UNK MCG, DAILY, INTRATHECAL
     Route: 037

REACTIONS (8)
  - ANXIETY [None]
  - DEPRESSION [None]
  - HEADACHE [None]
  - INSOMNIA [None]
  - PAIN [None]
  - PERSONALITY DISORDER [None]
  - SOMNOLENCE [None]
  - SPEECH DISORDER [None]
